FAERS Safety Report 25802704 (Version 2)
Quarter: 2025Q3

REPORT INFORMATION
  Report Type: Spontaneous
  Country: US (occurrence: US)
  Receive Date: 20250915
  Receipt Date: 20250916
  Transmission Date: 20251021
  Serious: Yes (Other)
  Sender: PFIZER
  Company Number: US-PFIZER INC-202500178925

PATIENT
  Age: 84 Year
  Sex: Female
  Weight: 49.9 kg

DRUGS (2)
  1. PREMARIN [Suspect]
     Active Substance: ESTROGENS, CONJUGATED
     Indication: Colporrhaphy
     Dosage: 0.5 G, 2X/WEEK
     Dates: end: 202508
  2. PREMARIN [Suspect]
     Active Substance: ESTROGENS, CONJUGATED
     Indication: Prolapse repair
     Dosage: 0.5 G, 2X/WEEK

REACTIONS (6)
  - Vision blurred [Unknown]
  - Rectocele [Unknown]
  - Malaise [Unknown]
  - Poor quality product administered [Unknown]
  - Off label use [Unknown]
  - Wrong technique in product usage process [Unknown]
